FAERS Safety Report 5589494-6 (Version None)
Quarter: 2008Q1

REPORT INFORMATION
  Report Type: 
  Country: None (occurrence: None)
  Receive Date: 20080109
  Receipt Date: 20080102
  Transmission Date: 20080703
  Serious: Yes (Death, Hospitalization)
  Sender: FDA-Public Use
  Company Number: 15496

PATIENT
  Age: 78 Year
  Sex: Male

DRUGS (11)
  1. CYTARABINE [Suspect]
     Indication: ACUTE MYELOID LEUKAEMIA
     Dosage: 36 MG PER_CYCLE SC
     Route: 058
     Dates: start: 20061204, end: 20061213
  2. TRANSEXAMIC ACID [Concomitant]
  3. RANITIDINE [Concomitant]
  4. ALTACE [Concomitant]
  5. TEMAZEPAM [Concomitant]
  6. COVERSYL [Concomitant]
  7. GARASONE [Concomitant]
  8. TYLENOL [Concomitant]
  9. LIPITOR [Concomitant]
  10. FLUCONAZOLE [Concomitant]
  11. NYSTATIN/LIDOCAINE [Concomitant]

REACTIONS (10)
  - ACUTE MYELOID LEUKAEMIA [None]
  - AGITATION [None]
  - ANAEMIA [None]
  - DYSPNOEA [None]
  - GENERAL PHYSICAL HEALTH DETERIORATION [None]
  - HEPATOTOXICITY [None]
  - IMMUNOSUPPRESSION [None]
  - MALIGNANT NEOPLASM PROGRESSION [None]
  - MUCOSAL INFLAMMATION [None]
  - RESTLESSNESS [None]
